FAERS Safety Report 24153165 (Version 1)
Quarter: 2024Q3

REPORT INFORMATION
  Report Type: Report from Study
  Country: US (occurrence: None)
  Receive Date: 20240730
  Receipt Date: 20240730
  Transmission Date: 20241017
  Serious: Yes (Other)
  Sender: ASTRAZENECA
  Company Number: 2024A171407

PATIENT
  Age: 2293 Week
  Sex: Male

DRUGS (1)
  1. FASENRA [Suspect]
     Active Substance: BENRALIZUMAB
     Indication: Asthma
     Route: 058
     Dates: start: 20240712

REACTIONS (4)
  - Pancreatitis [Not Recovered/Not Resolved]
  - Cough [Unknown]
  - Wheezing [Unknown]
  - Dyspnoea [Unknown]
